FAERS Safety Report 4680997-5 (Version None)
Quarter: 2005Q2

REPORT INFORMATION
  Report Type: 
  Country: None (occurrence: None)
  Receive Date: 20050601
  Receipt Date: 20050525
  Transmission Date: 20051028
  Serious: Yes (Other)
  Sender: FDA-Public Use
  Company Number: 2005079510

PATIENT
  Age: 71 Year
  Sex: Male
  Weight: 90.7194 kg

DRUGS (6)
  1. AMLODIPINE [Suspect]
     Indication: HYPERTENSION
  2. ADVAIR DISKUS (FLUTICASONE PROPIONATE, SALMETEROL XINAFOATE) [Concomitant]
  3. ATROVENT [Concomitant]
  4. ALBUTEROL (SALBUMATOL) [Concomitant]
  5. COUMADIN [Concomitant]
  6. HYDROCODONE BITARTRATE [Concomitant]

REACTIONS (9)
  - BURNING SENSATION [None]
  - COAGULOPATHY [None]
  - DEEP VEIN THROMBOSIS [None]
  - DRUG EFFECT DECREASED [None]
  - GASTROOESOPHAGEAL REFLUX DISEASE [None]
  - HYPERTENSION [None]
  - KNEE ARTHROPLASTY [None]
  - RASH ERYTHEMATOUS [None]
  - THROMBOSIS [None]
